FAERS Safety Report 21136982 (Version 1)
Quarter: 2022Q3

REPORT INFORMATION
  Report Type: Spontaneous
  Country: US (occurrence: None)
  Receive Date: 20220726
  Receipt Date: 20220726
  Transmission Date: 20221027
  Serious: Yes (Disabling)
  Sender: FDA-Public Use
  Company Number: None

PATIENT
  Age: 32 Year
  Sex: Female
  Weight: 45.9 kg

DRUGS (5)
  1. TRIAMCINOLONE ACETONIDE [Suspect]
     Active Substance: TRIAMCINOLONE ACETONIDE
     Indication: Eczema
     Dosage: FREQUENCY : AS NEEDED;?
     Route: 061
     Dates: start: 20201130, end: 20220501
  2. HYDROCORTISONE [Suspect]
     Active Substance: HYDROCORTISONE
     Indication: Eczema
     Dosage: FREQUENCY : TWICE A DAY;?
     Route: 061
     Dates: start: 20201130, end: 20220501
  3. PROTOPIC [Suspect]
     Active Substance: TACROLIMUS
  4. PROBIOTICS NOS [Concomitant]
     Active Substance: PROBIOTICS NOS
  5. VITAMINS [Concomitant]
     Active Substance: VITAMINS

REACTIONS (11)
  - Application site pain [None]
  - Eczema [None]
  - Eyelid irritation [None]
  - Face oedema [None]
  - Pruritus [None]
  - Insomnia [None]
  - Depression [None]
  - Skin atrophy [None]
  - Steroid withdrawal syndrome [None]
  - Drug ineffective [None]
  - Rash [None]

NARRATIVE: CASE EVENT DATE: 20220505
